FAERS Safety Report 18524918 (Version 1)
Quarter: 2020Q4

REPORT INFORMATION
  Report Type: Report from Study
  Country: US (occurrence: US)
  Receive Date: 20201119
  Receipt Date: 20201119
  Transmission Date: 20210114
  Serious: Yes (Hospitalization, Other)
  Sender: FDA-Public Use
  Company Number: US-TEVA-2020-US-1848900

PATIENT
  Age: 16 Year
  Sex: Male

DRUGS (8)
  1. IRINOTECAN [Suspect]
     Active Substance: IRINOTECAN
     Indication: DESMOPLASTIC SMALL ROUND CELL TUMOUR
     Dosage: AS VIT REGIMEN, ON DAYS 1-5 OF EACH THREE-WEEK CYCLE; RECEIVED TWO INDUCTION CYCLES
     Route: 042
  2. TEMOZOLOMIDE. [Suspect]
     Active Substance: TEMOZOLOMIDE
     Indication: DESMOPLASTIC SMALL ROUND CELL TUMOUR
     Dosage: AS VIT REGIMEN, ON DAYS 1-5 OF EACH THREE-WEEK CYCLE; RECEIVED TWO INDUCTION CYCLES
     Route: 048
  3. DOXORUBICIN [Suspect]
     Active Substance: DOXORUBICIN
     Indication: DESMOPLASTIC SMALL ROUND CELL TUMOUR
     Dosage: AS VDC REGIMEN; ON DAYS 1 AND 2 OF EACH 2-WEEK CYCLE
     Route: 042
  4. IFOSFAMIDE. [Suspect]
     Active Substance: IFOSFAMIDE
     Indication: DESMOPLASTIC SMALL ROUND CELL TUMOUR
     Dosage: AS IE REGIMEN, ON DAYS 1-5 OF EACH 2-WEEK CYCLE
     Route: 042
  5. VINCRISTINE [Suspect]
     Active Substance: VINCRISTINE
     Indication: DESMOPLASTIC SMALL ROUND CELL TUMOUR
     Dosage: AS VIT REGIMEN, ON DAY 1 WEEKLY OF EACH 3 WEEK CYCLE; RECEIVED TWO INDUCTION CYCLES
     Route: 042
  6. CYCLOPHOSPHAMIDE. [Suspect]
     Active Substance: CYCLOPHOSPHAMIDE
     Indication: DESMOPLASTIC SMALL ROUND CELL TUMOUR
     Dosage: AS VDC REGIMEN; ON DAYS 1 OF EACH 2-WEEK CYCLE
     Route: 042
  7. ETOPOSIDE. [Suspect]
     Active Substance: ETOPOSIDE
     Indication: DESMOPLASTIC SMALL ROUND CELL TUMOUR
     Dosage: AS IE REGIMEN, ON DAYS 1-5 OF EACH 2-WEEK CYCLE
     Route: 042
  8. VINCRISTINE [Suspect]
     Active Substance: VINCRISTINE
     Indication: DESMOPLASTIC SMALL ROUND CELL TUMOUR
     Dosage: AS VDC REGIMEN; ON DAY 1 OF EACH 2-WEEK CYCLE
     Route: 042

REACTIONS (8)
  - Nausea [Unknown]
  - Mucosal inflammation [Unknown]
  - Vomiting [Unknown]
  - Constipation [Unknown]
  - Weight decreased [Unknown]
  - Myelosuppression [Unknown]
  - Diarrhoea [Unknown]
  - Febrile neutropenia [Unknown]
